FAERS Safety Report 4781737-1 (Version None)
Quarter: 2005Q3

REPORT INFORMATION
  Report Type: 
  Country: None (occurrence: None)
  Receive Date: 20050927
  Receipt Date: 20050915
  Transmission Date: 20060218
  Serious: Yes (Hospitalization)
  Sender: FDA-Public Use
  Company Number: 2005BI014450

PATIENT
  Age: 39 Year
  Sex: Female

DRUGS (1)
  1. AVONEX [Suspect]
     Indication: MULTIPLE SCLEROSIS
     Dosage: 30 UG;QW;IM
     Route: 030
     Dates: start: 20050730

REACTIONS (12)
  - COORDINATION ABNORMAL [None]
  - FALL [None]
  - FEELING HOT [None]
  - FLUSHING [None]
  - HEAD INJURY [None]
  - LOSS OF CONTROL OF LEGS [None]
  - MEDICATION ERROR [None]
  - MUSCLE SPASMS [None]
  - MUSCULOSKELETAL DISORDER [None]
  - OVERDOSE [None]
  - PARALYSIS [None]
  - SENSATION OF HEAVINESS [None]
